FAERS Safety Report 4941818-6 (Version None)
Quarter: 2006Q1

REPORT INFORMATION
  Report Type: 
  Country: None (occurrence: None)
  Receive Date: 20060307
  Receipt Date: 20060223
  Transmission Date: 20060701
  Serious: Yes (Other)
  Sender: FDA-Public Use
  Company Number: FR-2006-003605

PATIENT
  Age: 36 Year
  Sex: Female

DRUGS (1)
  1. MIRENA [Suspect]
     Indication: CONTRACEPTION
     Dosage: 20 UG/DAY CONT, INTRA-UTERINE
     Route: 015
     Dates: start: 20050101, end: 20060204

REACTIONS (4)
  - FOCAL NODULAR HYPERPLASIA [None]
  - HAEMOGLOBIN DECREASED [None]
  - PERITONEAL HAEMORRHAGE [None]
  - RUPTURED ECTOPIC PREGNANCY [None]
